FAERS Safety Report 9796328 (Version 1)
Quarter: 2014Q1

REPORT INFORMATION
  Report Type: Spontaneous
  Country: AU (occurrence: AU)
  Receive Date: 20140103
  Receipt Date: 20140103
  Transmission Date: 20141002
  Serious: Yes (Hospitalization)
  Sender: FDA-Public Use
  Company Number: AU-UCBSA-107364

PATIENT
  Age: 68 Year
  Sex: Female

DRUGS (4)
  1. CIMZIA [Suspect]
     Indication: RHEUMATOID ARTHRITIS
     Route: 058
     Dates: start: 20130925, end: 201310
  2. CIMZIA [Suspect]
     Indication: RHEUMATOID ARTHRITIS
     Dosage: MAINTENANCE DOSE
     Route: 058
     Dates: start: 20131105, end: 2013
  3. ENDONE [Concomitant]
     Indication: PAIN
     Dosage: 3 HOURLY AS REQUIRED
     Route: 048
     Dates: start: 20131223
  4. OXYCONTIN [Concomitant]
     Indication: PAIN
     Dosage: TWICE A DAY AS REQUIRED
     Route: 048
     Dates: start: 20131223

REACTIONS (4)
  - Rib fracture [Recovering/Resolving]
  - Pneumonia [Recovered/Resolved]
  - Laceration [Recovering/Resolving]
  - Fall [Unknown]
